FAERS Safety Report 5257415-1 (Version None)
Quarter: 2007Q1

REPORT INFORMATION
  Report Type: 
  Country: None (occurrence: None)
  Receive Date: 20070307
  Receipt Date: 20060725
  Transmission Date: 20070707
  Serious: No
  Sender: FDA-Public Use
  Company Number: US-GLAXOSMITHKLINE-A0613491A

PATIENT
  Age: 63 Year
  Sex: Male

DRUGS (9)
  1. REQUIP [Suspect]
     Indication: RESTLESS LEGS SYNDROME
     Dosage: 2MG AT NIGHT
     Route: 048
     Dates: start: 20050101
  2. REQUIP [Suspect]
     Dosage: 4MG AT NIGHT
     Route: 048
     Dates: start: 20050101
  3. CARDURA [Concomitant]
  4. ATENOLOL [Concomitant]
  5. M.V.I. [Concomitant]
  6. FISH OIL [Concomitant]
  7. ASPIRIN [Concomitant]
  8. PROZAC [Concomitant]
  9. COQ10 [Concomitant]

REACTIONS (4)
  - DIZZINESS [None]
  - DRUG INEFFECTIVE [None]
  - NAUSEA [None]
  - PLATELET COUNT DECREASED [None]
